FAERS Safety Report 5495052-4 (Version None)
Quarter: 2007Q4

REPORT INFORMATION
  Report Type: 
  Country: None (occurrence: None)
  Receive Date: 20071015
  Receipt Date: 20061213
  Transmission Date: 20080405
  Serious: Yes (Hospitalization)
  Sender: FDA-Public Use
  Company Number: S06-USA-05235-01

PATIENT
  Age: 15 Year
  Sex: Female

DRUGS (2)
  1. LEXAPRO [Suspect]
     Indication: DEPRESSION
     Dosage: 20 MG QD PO
     Route: 048
     Dates: start: 20050301, end: 20060201
  2. TRILEPTAL [Suspect]
     Dates: start: 20060201, end: 20060201

REACTIONS (2)
  - OVERDOSE [None]
  - SUICIDE ATTEMPT [None]
